FAERS Safety Report 5875905-5 (Version None)
Quarter: 2008Q3

REPORT INFORMATION
  Report Type: 
  Country: None (occurrence: None)
  Receive Date: 20080910
  Receipt Date: 20080901
  Transmission Date: 20090109
  Serious: Yes (Other)
  Sender: FDA-Public Use
  Company Number: PHHY2008AU13966

PATIENT
  Sex: Female

DRUGS (5)
  1. EXJADE [Suspect]
     Indication: IRON OVERLOAD
     Dosage: 500 MG/DAILY
     Dates: start: 20070101
  2. EXJADE [Suspect]
     Indication: TRANSFUSION
  3. OMEPRAZOLE [Concomitant]
  4. PENICILLIN [Concomitant]
  5. LOMOTIL [Concomitant]

REACTIONS (4)
  - DISEASE PROGRESSION [None]
  - PSEUDOHYPERKALAEMIA [None]
  - PULMONARY EMBOLISM [None]
  - THROMBOCYTHAEMIA [None]
